FAERS Safety Report 17345753 (Version 1)
Quarter: 2020Q1

REPORT INFORMATION
  Report Type: Spontaneous
  Country: BR (occurrence: BR)
  Receive Date: 20200129
  Receipt Date: 20200129
  Transmission Date: 20200409
  Serious: Yes (Other)
  Sender: FDA-Public Use
  Company Number: BR-NOVOPROD-708632

PATIENT
  Sex: Male

DRUGS (3)
  1. NOVORAPID [Suspect]
     Active Substance: INSULIN ASPART
     Dosage: 5IU IN THE MORNING AND 5IU IN THE AFTERNOON (NEW PEN)
     Route: 065
  2. NOVORAPID [Suspect]
     Active Substance: INSULIN ASPART
     Indication: TYPE 1 DIABETES MELLITUS
     Dosage: 5IU IN THE MORNING AND 5IU IN THE AFTERNOON
     Route: 065
  3. NOVOLIN N [Suspect]
     Active Substance: INSULIN HUMAN
     Indication: TYPE 1 DIABETES MELLITUS
     Dosage: 15 IU, QD (5IU IN THE MORNING 5IU IN THE AFTERNOON AND 5IU AT NIGHT)
     Route: 065

REACTIONS (2)
  - Pruritus [Recovered/Resolved]
  - Extremity necrosis [Unknown]
